FAERS Safety Report 18345933 (Version 2)
Quarter: 2020Q4

REPORT INFORMATION
  Report Type: Spontaneous
  Country: BE (occurrence: BE)
  Receive Date: 20201005
  Receipt Date: 20201030
  Transmission Date: 20210114
  Serious: Yes (Hospitalization, Disabling)
  Sender: FDA-Public Use
  Company Number: BE-JNJFOC-20200939234

PATIENT
  Sex: Female

DRUGS (3)
  1. HUMIRA [Suspect]
     Active Substance: ADALIMUMAB
     Indication: PSORIASIS
     Route: 058
  2. CORTISON [Concomitant]
     Active Substance: CORTISONE ACETATE
  3. STELARA [Suspect]
     Active Substance: USTEKINUMAB
     Indication: PRODUCT USED FOR UNKNOWN INDICATION
     Route: 058

REACTIONS (4)
  - Immunodeficiency [Unknown]
  - Lung disorder [Unknown]
  - Pleurisy [Unknown]
  - Hospitalisation [Unknown]
